FAERS Safety Report 9747651 (Version 1)
Quarter: 2013Q4

REPORT INFORMATION
  Report Type: Spontaneous
  Country: US (occurrence: None)
  Receive Date: 20131205
  Receipt Date: 20131205
  Transmission Date: 20140711
  Serious: Yes (Other)
  Sender: FDA-Public Use
  Company Number: ADE13-031

PATIENT
  Age: 75 Year
  Sex: Female
  Weight: 74.5 kg

DRUGS (2)
  1. HEPARIN SODIUM [Suspect]
     Indication: CATHETERISATION CARDIAC
     Dosage: 11,000 U TOTAL DOSE
     Route: 042
     Dates: start: 20131203, end: 20131203
  2. CLOPIDOGREL [Concomitant]

REACTIONS (2)
  - Drug effect decreased [None]
  - Coagulation time shortened [None]
